FAERS Safety Report 18400496 (Version 1)
Quarter: 2020Q4

REPORT INFORMATION
  Report Type: Spontaneous
  Country: US (occurrence: US)
  Receive Date: 20201019
  Receipt Date: 20201019
  Transmission Date: 20210114
  Serious: Yes (Death, Other)
  Sender: FDA-Public Use
  Company Number: US-AMGEN-USASP2020164688

PATIENT

DRUGS (6)
  1. LANTHANUM CARBONATE. [Concomitant]
     Active Substance: LANTHANUM CARBONATE
  2. SEVELAMER [Concomitant]
     Active Substance: SEVELAMER
  3. PARACALCITOLO TEVA [Concomitant]
  4. CINACALCET HCL [Suspect]
     Active Substance: CINACALCET HYDROCHLORIDE
     Indication: HYPERPARATHYROIDISM SECONDARY
     Dosage: UNK
     Route: 065
  5. STEROL D [Concomitant]
  6. CALCIUM ACETATE. [Concomitant]
     Active Substance: CALCIUM ACETATE

REACTIONS (5)
  - Therapeutic product effect incomplete [Unknown]
  - Therapy non-responder [Unknown]
  - Hypoparathyroidism [Unknown]
  - Disease recurrence [Unknown]
  - Death [Fatal]
